FAERS Safety Report 18910989 (Version 1)
Quarter: 2021Q1

REPORT INFORMATION
  Report Type: Spontaneous
  Country: JP (occurrence: JP)
  Receive Date: 20210218
  Receipt Date: 20210218
  Transmission Date: 20210420
  Serious: Yes (Hospitalization)
  Sender: FDA-Public Use
  Company Number: JP-MYLANLABS-2021M1009207

PATIENT
  Age: 8 Decade
  Sex: Male

DRUGS (2)
  1. CLARITHROMYCIN. [Suspect]
     Active Substance: CLARITHROMYCIN
     Indication: OSTEITIS
     Route: 048
  2. CABAZITAXEL [Interacting]
     Active Substance: CABAZITAXEL
     Indication: PROSTATE CANCER
     Dosage: 15 MG/M^2
     Route: 065

REACTIONS (2)
  - Drug interaction [Unknown]
  - Neutropenia [Recovered/Resolved]
